FAERS Safety Report 23686195 (Version 1)
Quarter: 2024Q1

REPORT INFORMATION
  Report Type: Spontaneous
  Country: FR (occurrence: FR)
  Receive Date: 20240329
  Receipt Date: 20240329
  Transmission Date: 20240409
  Serious: Yes (Death, Other)
  Sender: FDA-Public Use
  Company Number: FR-AFSSAPS-GR2024000322

PATIENT
  Age: 25 Year
  Sex: Female
  Weight: 55 kg

DRUGS (4)
  1. PREDNISOLONE [Suspect]
     Active Substance: PREDNISOLONE
     Indication: Prophylaxis against transplant rejection
     Dosage: 5 MILLIGRAM, ONCE A DAY (1-0-0)
     Route: 048
     Dates: start: 2020, end: 20240213
  2. CELLCEPT [Suspect]
     Active Substance: MYCOPHENOLATE MOFETIL
     Indication: Prophylaxis against transplant rejection
     Dosage: 4 DOSAGE FORM, ONCE A DAY (2-0-2)
     Route: 048
     Dates: start: 2020, end: 20240213
  3. ENVARSUS XR [Suspect]
     Active Substance: TACROLIMUS
     Indication: Prophylaxis against transplant rejection
     Dosage: 1.5 MILLIGRAM, ONCE A DAY (2-0-0)
     Route: 048
     Dates: start: 2020, end: 20240213
  4. SOLIRIS [Suspect]
     Active Substance: ECULIZUMAB
     Indication: Prophylaxis against transplant rejection
     Dosage: 1 DOSAGE FORM, EVERY MONTH
     Route: 042
     Dates: start: 2020, end: 20240213

REACTIONS (1)
  - Septic shock [Fatal]

NARRATIVE: CASE EVENT DATE: 20240212
